FAERS Safety Report 10760562 (Version 1)
Quarter: 2015Q1

REPORT INFORMATION
  Report Type: Spontaneous
  Country: ES (occurrence: None)
  Receive Date: 20150202
  Receipt Date: 20150202
  Transmission Date: 20150721
  Serious: Yes (Death, Other)
  Sender: FDA-Public Use
  Company Number: ES2015GSK003347

PATIENT
  Age: 55 Year
  Sex: Female

DRUGS (15)
  1. DIDANOSINE (DIDANOSINE) [Suspect]
     Active Substance: DIDANOSINE
     Indication: ACQUIRED IMMUNODEFICIENCY SYNDROME
     Dates: start: 20141219, end: 20141220
  2. PRIMPERAN [Concomitant]
     Active Substance: METOCLOPRAMIDE HYDROCHLORIDE
  3. NOLOTIL (METAMIZOLE MAGNESIUM) [Concomitant]
  4. PARACETAMOL (PARACETAMOL) [Concomitant]
     Active Substance: ACETAMINOPHEN
  5. PREGABALINA (PREGABALIN) [Concomitant]
  6. SEPTRIN FORTE (CO-TRIMOXAZOLE) [Concomitant]
  7. PHENTANYL (FENTANYL CITRATE) [Concomitant]
  8. TRUVADA [Suspect]
     Active Substance: EMTRICITABINE\TENOFOVIR DISOPROXIL FUMARATE
     Indication: ACQUIRED IMMUNODEFICIENCY SYNDROME
     Dates: start: 20141219, end: 20141226
  9. ENOXAPARINA (ENOXAPARIN) [Concomitant]
  10. DOLUTEGRAVIR [Suspect]
     Active Substance: DOLUTEGRAVIR
     Indication: HIV INFECTION
     Route: 048
     Dates: start: 20141219, end: 20141226
  11. ONDANSETRON. [Concomitant]
     Active Substance: ONDANSETRON
  12. DEXAMETASONA (DEXAMETHASONE) [Concomitant]
  13. OMEPRAZOL (OMEPRAZOLE) [Concomitant]
  14. KEPPRA [Concomitant]
     Active Substance: LEVETIRACETAM
  15. FOLIC ACID (FOLIC ACID) [Concomitant]
     Active Substance: FOLIC ACID

REACTIONS (2)
  - Cerebral haemorrhage [None]
  - Off label use [None]

NARRATIVE: CASE EVENT DATE: 20141219
